FAERS Safety Report 7555427-6 (Version None)
Quarter: 2011Q2

REPORT INFORMATION
  Report Type: 
  Country: None (occurrence: None)
  Receive Date: 20110617
  Receipt Date: 20110608
  Transmission Date: 20111010
  Serious: Yes (Hospitalization, Other)
  Sender: FDA-Public Use
  Company Number: US-ASTRAZENECA-2010SE33041

PATIENT
  Age: 58 Year
  Sex: Male
  Weight: 79.4 kg

DRUGS (12)
  1. SEROQUEL [Suspect]
     Indication: AFFECTIVE DISORDER
     Route: 048
     Dates: start: 20080601
  2. PRILOSEC [Concomitant]
     Indication: GASTRIC ULCER
  3. LISINOPRIL [Concomitant]
  4. REMERON [Concomitant]
  5. LORAZEPAM [Concomitant]
     Dosage: 1 MG AM
     Route: 048
  6. VITAMIN TAB [Concomitant]
  7. LORAZEPAM [Concomitant]
     Dosage: 4 TABS AS NEEDED AT NIGHT
     Route: 048
  8. LORAZEPAN [Concomitant]
  9. ATIVAN [Concomitant]
  10. SEROQUEL [Suspect]
     Indication: DEPRESSION
     Route: 048
     Dates: start: 20080601
  11. LEXAPRO [Concomitant]
     Indication: AFFECTIVE DISORDER
     Route: 048
  12. MIRTAZAPINE [Concomitant]
     Indication: INSOMNIA
     Route: 048

REACTIONS (5)
  - GASTRECTOMY [None]
  - SPEECH DISORDER [None]
  - CEREBROVASCULAR ACCIDENT [None]
  - MONOPLEGIA [None]
  - ULCER HAEMORRHAGE [None]
